FAERS Safety Report 11968953 (Version 1)
Quarter: 2016Q1

REPORT INFORMATION
  Report Type: Spontaneous
  Country: US (occurrence: None)
  Receive Date: 20160127
  Receipt Date: 20160127
  Transmission Date: 20160526
  Serious: Yes (Other)
  Sender: FDA-Public Use
  Company Number: None

PATIENT
  Age: 33 Year
  Sex: Female
  Weight: 72.58 kg

DRUGS (1)
  1. MIRENA [Suspect]
     Active Substance: LEVONORGESTREL

REACTIONS (12)
  - Nausea [None]
  - Depression [None]
  - Abdominal pain [None]
  - Back pain [None]
  - Migraine [None]
  - Irritability [None]
  - Vaginal haemorrhage [None]
  - Dizziness [None]
  - Vomiting [None]
  - Anxiety [None]
  - Pain in extremity [None]
  - Weight increased [None]

NARRATIVE: CASE EVENT DATE: 20150620
